FAERS Safety Report 7006997-8 (Version None)
Quarter: 2010Q3

REPORT INFORMATION
  Report Type: 
  Country: None (occurrence: None)
  Receive Date: 20100915
  Receipt Date: 20100903
  Transmission Date: 20110219
  Serious: Yes (Hospitalization)
  Sender: FDA-Public Use
  Company Number: 2010SP042229

PATIENT
  Age: 68 Year
  Sex: Female

DRUGS (3)
  1. SAPHRIS [Suspect]
     Indication: BIPOLAR DISORDER
     Dosage: 5 MG HS SL
     Route: 060
     Dates: start: 20100709, end: 20100719
  2. PRISTIQ [Concomitant]
  3. CLONAZEPAM [Concomitant]

REACTIONS (1)
  - DEHYDRATION [None]
